FAERS Safety Report 7747603-4 (Version None)
Quarter: 2011Q3

REPORT INFORMATION
  Report Type: 
  Country: None (occurrence: None)
  Receive Date: 20110913
  Receipt Date: 20110128
  Transmission Date: 20111222
  Serious: No
  Sender: FDA-Public Use
  Company Number: US-BAYER-2011-011463

PATIENT
  Age: 52 Year
  Sex: Male
  Weight: 77.098 kg

DRUGS (1)
  1. MAGNEVIST [Suspect]
     Indication: NUCLEAR MAGNETIC RESONANCE IMAGING
     Dosage: 15 ML, LINE FLUSHES IN RT HAND
     Route: 042
     Dates: start: 20110127, end: 20110127

REACTIONS (4)
  - COUGH [None]
  - SNEEZING [None]
  - FLUSHING [None]
  - NASAL CONGESTION [None]
